FAERS Safety Report 10446891 (Version 2)
Quarter: 2014Q3

REPORT INFORMATION
  Report Type: Spontaneous
  Country: US (occurrence: None)
  Receive Date: 20140909
  Receipt Date: 20140925
  Transmission Date: 20150326
  Serious: Yes (Other)
  Sender: FDA-Public Use
  Company Number: 2014-20276

PATIENT
  Age: 86 Year
  Sex: Male

DRUGS (1)
  1. EYLEA [Suspect]
     Active Substance: AFLIBERCEPT
     Indication: AGE-RELATED MACULAR DEGENERATION
     Dosage: 2 MG MILLIGRAM(S)/0.05 ML EVERY 4 WEEKS, INTRAOCULAR
     Route: 031
     Dates: start: 20140828, end: 20140828

REACTIONS (6)
  - Blindness [None]
  - Eye pain [None]
  - Eye inflammation [None]
  - Visual acuity reduced [None]
  - Blindness unilateral [None]
  - Vitreous floaters [None]

NARRATIVE: CASE EVENT DATE: 20140902
